FAERS Safety Report 9696451 (Version 2)
Quarter: 2013Q4

REPORT INFORMATION
  Report Type: Spontaneous
  Country: US (occurrence: US)
  Receive Date: 20131119
  Receipt Date: 20131125
  Transmission Date: 20140711
  Serious: Yes (Hospitalization)
  Sender: FDA-Public Use
  Company Number: US-BAXTER-2013BAX045103

PATIENT
  Sex: Female

DRUGS (2)
  1. DIANEAL LOW CALCIUM (ULTRABAG) [Suspect]
     Indication: PERITONEAL DIALYSIS
     Dosage: TOTAL FILL VOLUME OF 12000
     Route: 033
     Dates: start: 20130122
  2. EXTRANEAL [Suspect]
     Indication: PERITONEAL DIALYSIS
     Dosage: TOTAL FILL VOLUME OF 12000
     Route: 033
     Dates: start: 20130122

REACTIONS (2)
  - Peritonitis bacterial [Recovering/Resolving]
  - Vertigo [Unknown]
